FAERS Safety Report 10677893 (Version 2)
Quarter: 2015Q1

REPORT INFORMATION
  Report Type: Spontaneous
  Country: US (occurrence: US)
  Receive Date: 20141229
  Receipt Date: 20150119
  Transmission Date: 20150720
  Serious: Yes (Other)
  Sender: FDA-Public Use
  Company Number: US-009507513-1412USA012469

PATIENT
  Age: 80 Year
  Sex: Male

DRUGS (1)
  1. JANUMET [Suspect]
     Active Substance: METFORMIN HYDROCHLORIDE\SITAGLIPTIN PHOSPHATE
     Indication: TYPE 2 DIABETES MELLITUS
     Dosage: 50/1000 MG / ONE TABLET, TWICE DAILY
     Route: 048
     Dates: start: 2012

REACTIONS (2)
  - Blood glucose decreased [Not Recovered/Not Resolved]
  - Cardiac operation [Unknown]

NARRATIVE: CASE EVENT DATE: 201410
